FAERS Safety Report 6245763-8 (Version None)
Quarter: 2009Q2

REPORT INFORMATION
  Report Type: 
  Country: None (occurrence: None)
  Receive Date: 20090625
  Receipt Date: 20090610
  Transmission Date: 20091009
  Serious: Yes (Hospitalization, Disabling)
  Sender: FDA-Public Use
  Company Number: PL-GENENTECH-262034

PATIENT
  Sex: Male
  Weight: 90 kg

DRUGS (8)
  1. BEVACIZUMAB [Suspect]
     Indication: NON-SMALL CELL LUNG CANCER
     Dosage: 675 MG, Q3W
     Route: 042
     Dates: start: 20080311, end: 20080520
  2. CISPLATIN [Suspect]
     Indication: NON-SMALL CELL LUNG CANCER
     Route: 065
  3. CARLOXAN [Suspect]
     Indication: DRUG USE FOR UNKNOWN INDICATION
     Dosage: 5 ML, QD
     Route: 065
     Dates: start: 20080311
  4. VINORELBINE [Suspect]
     Indication: DRUG USE FOR UNKNOWN INDICATION
     Route: 065
  5. ZOFRAN [Concomitant]
     Indication: DRUG USE FOR UNKNOWN INDICATION
     Dates: start: 20080311
  6. LOSARTAN POTASSIUM [Concomitant]
     Indication: DRUG USE FOR UNKNOWN INDICATION
     Dosage: UNK, UNK
     Dates: start: 20020101
  7. BISOPROLOL [Concomitant]
     Indication: DRUG USE FOR UNKNOWN INDICATION
     Dates: start: 20020101
  8. UNKNOWN MEDICATION [Concomitant]
     Indication: DRUG USE FOR UNKNOWN INDICATION

REACTIONS (2)
  - BLOOD CREATININE INCREASED [None]
  - UPPER RESPIRATORY TRACT INFECTION [None]
